FAERS Safety Report 5587620-6 (Version None)
Quarter: 2008Q1

REPORT INFORMATION
  Report Type: 
  Country: None (occurrence: None)
  Receive Date: 20080110
  Receipt Date: 20080103
  Transmission Date: 20080703
  Serious: Yes (Hospitalization)
  Sender: FDA-Public Use
  Company Number: US-MERCK-0801USA00328

PATIENT

DRUGS (3)
  1. JANUVIA [Suspect]
     Indication: TYPE 2 DIABETES MELLITUS
     Route: 048
     Dates: start: 20071001, end: 20070101
  2. METFORMIN [Concomitant]
     Route: 065
  3. DUETACT [Concomitant]
     Route: 065

REACTIONS (1)
  - PANCREATITIS ACUTE [None]
